FAERS Safety Report 8508607-7 (Version None)
Quarter: 2012Q3

REPORT INFORMATION
  Report Type: 
  Country: None (occurrence: None)
  Receive Date: 20120713
  Receipt Date: 20120710
  Transmission Date: 20120928
  Serious: Yes (Death)
  Sender: FDA-Public Use
  Company Number: US-PFIZER INC-2012165070

PATIENT
  Sex: Female

DRUGS (1)
  1. SUTENT [Suspect]
     Indication: PANCREATIC NEUROENDOCRINE TUMOUR
     Dosage: 37.5 MG (3 CAPS OF 12.5 MG), DAILY
     Route: 048

REACTIONS (2)
  - DISEASE PROGRESSION [None]
  - PANCREATIC NEUROENDOCRINE TUMOUR [None]
